FAERS Safety Report 16583912 (Version 1)
Quarter: 2019Q3

REPORT INFORMATION
  Report Type: Spontaneous
  Country: DE (occurrence: DE)
  Receive Date: 20190717
  Receipt Date: 20190717
  Transmission Date: 20191004
  Serious: Yes (Life-Threatening, Hospitalization)
  Sender: FDA-Public Use
  Company Number: DE-PFIZER INC-2019305240

PATIENT
  Age: 77 Year
  Sex: Male

DRUGS (9)
  1. ACETYLSALICYLIC ACID [Concomitant]
     Active Substance: ASPIRIN
     Dosage: 100 MG, QD
     Route: 065
  2. ATENOLOL. [Concomitant]
     Active Substance: ATENOLOL
     Dosage: 100 MG, QD
  3. HYDROCHLOROTHIAZIDE/RAMIPRIL [Suspect]
     Active Substance: HYDROCHLOROTHIAZIDE\RAMIPRIL
     Dosage: 5/25 MG, QD
  4. TORASEMID [Concomitant]
     Active Substance: TORSEMIDE
     Dosage: 5 MG, QD
  5. METFORMIN [Concomitant]
     Active Substance: METFORMIN HYDROCHLORIDE
     Dosage: 1000 MG, 0.5-0-0.5-0
  6. SIMVASTATIN. [Concomitant]
     Active Substance: SIMVASTATIN
     Dosage: 20 MG, QD
  7. ALLOPURINOL. [Concomitant]
     Active Substance: ALLOPURINOL
     Dosage: 300 MG, QD
  8. PANTOPRAZOL [PANTOPRAZOLE] [Concomitant]
     Active Substance: PANTOPRAZOLE
     Dosage: 40 MG, QD
  9. RAMIPRIL. [Suspect]
     Active Substance: RAMIPRIL
     Dosage: 5 MG, QD
     Route: 065

REACTIONS (1)
  - Tongue oedema [Unknown]

NARRATIVE: CASE EVENT DATE: 20171214
